FAERS Safety Report 13271350 (Version 9)
Quarter: 2022Q1

REPORT INFORMATION
  Report Type: Report from Study
  Country: CN (occurrence: None)
  Receive Date: 20170226
  Receipt Date: 20220321
  Transmission Date: 20220423
  Serious: Yes (Hospitalization)
  Sender: FDA-Public Use
  Company Number: CN-ROCHE-1896137

PATIENT
  Age: 42 Year
  Sex: Female
  Weight: 60 kg

DRUGS (59)
  1. PERTUZUMAB [Suspect]
     Active Substance: PERTUZUMAB
     Indication: HER2 positive breast cancer
     Route: 042
     Dates: start: 20160929, end: 20160929
  2. PERTUZUMAB [Suspect]
     Active Substance: PERTUZUMAB
     Dosage: MOST RECENT DOSE PRIOR TO THE EVENT ONSET WAS ON 05/DEC/2016
     Route: 042
  3. TRASTUZUMAB [Suspect]
     Active Substance: TRASTUZUMAB
     Indication: HER2 positive breast cancer
     Dosage: LOADING DOSE AS PER PROTOCOL
     Route: 042
     Dates: start: 20160929, end: 20160929
  4. TRASTUZUMAB [Suspect]
     Active Substance: TRASTUZUMAB
     Dosage: MAINTENANCE DOSE AS PER PROTOCOL, MOST RECENT DOSE OF 390 MG WAS ADMINISTERED PRIOR TO ADVERSE EVENT
     Route: 042
  5. DOCETAXEL [Suspect]
     Active Substance: DOCETAXEL
     Indication: HER2 positive breast cancer
     Dosage: DOSE AS PER PROTOCOL, MOST RECENT DOSE OF 129 MG WAS ADMINISTERED PRIOR TO ADVERSE EVENT ONSET ON 05
     Route: 042
     Dates: start: 20160929
  6. FLUOROURACIL [Suspect]
     Active Substance: FLUOROURACIL
     Indication: HER2 positive breast cancer
     Dosage: 500-600 MG/M2 DOSE AS PER PROTOCOL, MOST RECENT DOSE OF 862 MG PRIOR TO ADVERSE EVENT ON 19/JAN/2017
     Route: 042
     Dates: start: 20170119
  7. EPIRUBICIN HYDROCHLORIDE [Suspect]
     Active Substance: EPIRUBICIN HYDROCHLORIDE
     Indication: HER2 positive breast cancer
     Dosage: DOSE 90-120 MG/M2 AS PER PROTOCOL, MOST RECENT DOSE OF 172 MG PRIOR TO ADVERSE EVENT ON 19/JAN/2017
     Route: 042
     Dates: start: 20170119
  8. CYCLOPHOSPHAMIDE [Suspect]
     Active Substance: CYCLOPHOSPHAMIDE
     Indication: HER2 positive breast cancer
     Dosage: DOSE 500-600 MG/M2 AS PER PROTOCOL, MOST RECENT DOSE OF 862 MG PRIOR TO ADVERSE EVENT ON 19/JAN/2017
     Route: 042
     Dates: start: 20170119
  9. MAGNESIUM ISOGLYCYRRHIZINATE [Concomitant]
     Active Substance: MAGNESIUM ISOGLYCYRRHIZINATE
     Indication: Prophylaxis
     Dates: start: 20170119, end: 20170121
  10. MAGNESIUM ISOGLYCYRRHIZINATE [Concomitant]
     Active Substance: MAGNESIUM ISOGLYCYRRHIZINATE
     Dates: start: 20170220, end: 20170222
  11. MAGNESIUM ISOGLYCYRRHIZINATE [Concomitant]
     Active Substance: MAGNESIUM ISOGLYCYRRHIZINATE
     Dates: start: 20170314, end: 20170316
  12. MAGNESIUM ISOGLYCYRRHIZINATE [Concomitant]
     Active Substance: MAGNESIUM ISOGLYCYRRHIZINATE
     Dates: start: 20170209, end: 20170211
  13. MAGNESIUM ISOGLYCYRRHIZINATE [Concomitant]
     Active Substance: MAGNESIUM ISOGLYCYRRHIZINATE
     Dates: start: 20170212, end: 20170214
  14. MAGNESIUM ISOGLYCYRRHIZINATE [Concomitant]
     Active Substance: MAGNESIUM ISOGLYCYRRHIZINATE
     Dates: start: 20170216, end: 20170218
  15. MAGNESIUM ISOGLYCYRRHIZINATE [Concomitant]
     Active Substance: MAGNESIUM ISOGLYCYRRHIZINATE
     Dates: start: 20170219, end: 20170219
  16. MAGNESIUM ISOGLYCYRRHIZINATE [Concomitant]
     Active Substance: MAGNESIUM ISOGLYCYRRHIZINATE
     Dates: start: 20170412, end: 20170413
  17. GLUTATHIONE [Concomitant]
     Active Substance: GLUTATHIONE
     Dates: start: 20170119, end: 20170121
  18. GLUTATHIONE [Concomitant]
     Active Substance: GLUTATHIONE
     Dates: start: 20170209, end: 20170211
  19. GLUTATHIONE [Concomitant]
     Active Substance: GLUTATHIONE
     Dates: start: 20170216, end: 20170218
  20. GLUTATHIONE [Concomitant]
     Active Substance: GLUTATHIONE
     Dates: start: 20170314, end: 20170316
  21. GLUTATHIONE [Concomitant]
     Active Substance: GLUTATHIONE
     Dates: start: 20170412, end: 20170413
  22. GLUTATHIONE [Concomitant]
     Active Substance: GLUTATHIONE
     Dates: start: 20170212, end: 20170214
  23. GLUTATHIONE [Concomitant]
     Active Substance: GLUTATHIONE
     Dates: start: 20170219, end: 20170219
  24. GLUTATHIONE [Concomitant]
     Active Substance: GLUTATHIONE
     Dates: start: 20170220, end: 20170222
  25. OMEPRAZOLE SODIUM [Concomitant]
     Active Substance: OMEPRAZOLE SODIUM
     Dates: start: 20170119, end: 20170121
  26. OMEPRAZOLE SODIUM [Concomitant]
     Active Substance: OMEPRAZOLE SODIUM
     Dates: start: 20170220, end: 20170222
  27. OMEPRAZOLE SODIUM [Concomitant]
     Active Substance: OMEPRAZOLE SODIUM
     Dates: start: 20170314, end: 20170316
  28. OMEPRAZOLE SODIUM [Concomitant]
     Active Substance: OMEPRAZOLE SODIUM
     Dates: start: 20170412, end: 20170413
  29. CREATINE [Concomitant]
     Active Substance: CREATINE
     Dates: start: 20170119, end: 20170121
  30. CREATINE [Concomitant]
     Active Substance: CREATINE
     Dates: start: 20170220, end: 20170222
  31. CREATINE [Concomitant]
     Active Substance: CREATINE
     Dates: start: 20170314, end: 20170316
  32. CREATINE [Concomitant]
     Active Substance: CREATINE
     Dates: start: 20170412, end: 20170413
  33. VITAMIN B6 [Concomitant]
     Active Substance: PYRIDOXINE HYDROCHLORIDE
     Dates: start: 20170119, end: 20170121
  34. VITAMIN B6 [Concomitant]
     Active Substance: PYRIDOXINE HYDROCHLORIDE
     Dates: start: 20170220, end: 20170222
  35. VITAMIN B6 [Concomitant]
     Active Substance: PYRIDOXINE HYDROCHLORIDE
     Dates: start: 20170314, end: 20170316
  36. VITAMIN B6 [Concomitant]
     Active Substance: PYRIDOXINE HYDROCHLORIDE
     Dates: start: 20170412, end: 20170413
  37. VITAMIN C [Concomitant]
     Active Substance: ASCORBIC ACID
     Dates: start: 20170119, end: 20170121
  38. VITAMIN C [Concomitant]
     Active Substance: ASCORBIC ACID
     Dates: start: 20170220, end: 20170222
  39. VITAMIN C [Concomitant]
     Active Substance: ASCORBIC ACID
     Dates: start: 20170314, end: 20170316
  40. VITAMIN C [Concomitant]
     Active Substance: ASCORBIC ACID
     Dates: start: 20170412, end: 20170413
  41. DEXAMETHASONE SODIUM PHOSPHATE [Concomitant]
     Active Substance: DEXAMETHASONE SODIUM PHOSPHATE
     Dates: start: 20170119, end: 20170120
  42. DEXAMETHASONE SODIUM PHOSPHATE [Concomitant]
     Active Substance: DEXAMETHASONE SODIUM PHOSPHATE
     Dates: start: 20170220, end: 20170221
  43. DEXAMETHASONE SODIUM PHOSPHATE [Concomitant]
     Active Substance: DEXAMETHASONE SODIUM PHOSPHATE
     Dates: start: 20170314, end: 20170315
  44. DEXAMETHASONE SODIUM PHOSPHATE [Concomitant]
     Active Substance: DEXAMETHASONE SODIUM PHOSPHATE
     Dates: start: 20170412, end: 20170413
  45. PROMETHAZINE HYDROCHLORIDE [Concomitant]
     Active Substance: PROMETHAZINE HYDROCHLORIDE
     Dates: start: 20170119, end: 20170119
  46. PROMETHAZINE HYDROCHLORIDE [Concomitant]
     Active Substance: PROMETHAZINE HYDROCHLORIDE
     Dates: start: 20170220, end: 20170220
  47. PROMETHAZINE HYDROCHLORIDE [Concomitant]
     Active Substance: PROMETHAZINE HYDROCHLORIDE
     Dates: start: 20170314, end: 20170314
  48. PHOSPHOLIPID [Concomitant]
     Active Substance: PHOSPHOLIPID
     Dates: start: 20170209, end: 20170214
  49. PHOSPHOLIPID [Concomitant]
     Active Substance: PHOSPHOLIPID
     Dates: start: 20170216, end: 20170219
  50. PHOSPHOLIPID [Concomitant]
     Active Substance: PHOSPHOLIPID
     Dates: start: 20170314, end: 20170316
  51. PHOSPHOLIPID [Concomitant]
     Active Substance: PHOSPHOLIPID
     Route: 042
     Dates: start: 20170412, end: 20170413
  52. TROPISETRON HYDROCHLORIDE [Concomitant]
     Active Substance: TROPISETRON HYDROCHLORIDE
     Dates: start: 20170119, end: 20170121
  53. TROPISETRON HYDROCHLORIDE [Concomitant]
     Active Substance: TROPISETRON HYDROCHLORIDE
     Dates: start: 20170220, end: 20170222
  54. TROPISETRON HYDROCHLORIDE [Concomitant]
     Active Substance: TROPISETRON HYDROCHLORIDE
     Dates: start: 20170314, end: 20170316
  55. TROPISETRON HYDROCHLORIDE [Concomitant]
     Active Substance: TROPISETRON HYDROCHLORIDE
     Dates: start: 20170412, end: 20170413
  56. SODIUM CHLORIDE [Concomitant]
     Active Substance: SODIUM CHLORIDE
     Dates: start: 20170119, end: 20170121
  57. SODIUM CHLORIDE [Concomitant]
     Active Substance: SODIUM CHLORIDE
     Dates: start: 20170220, end: 20170222
  58. SODIUM CHLORIDE [Concomitant]
     Active Substance: SODIUM CHLORIDE
     Dates: start: 20170314, end: 20170316
  59. TAMOXIFEN [Concomitant]
     Active Substance: TAMOXIFEN
     Dates: start: 201706

REACTIONS (1)
  - Liver injury [Recovered/Resolved]

NARRATIVE: CASE EVENT DATE: 20170208
